FAERS Safety Report 15399849 (Version 1)
Quarter: 2018Q3

REPORT INFORMATION
  Report Type: Report from Study
  Country: US (occurrence: US)
  Receive Date: 20180918
  Receipt Date: 20180918
  Transmission Date: 20181010
  Serious: Yes (Other)
  Sender: FDA-Public Use
  Company Number: US-BRISTOL-MYERS SQUIBB COMPANY-BMS-2018-083351

PATIENT
  Age: 43 Year
  Sex: Female
  Weight: 63.6 kg

DRUGS (2)
  1. MYCOPHENOLATE MOFETIL. [Suspect]
     Active Substance: MYCOPHENOLATE MOFETIL
     Indication: PRODUCT USED FOR UNKNOWN INDICATION
     Dosage: 1000 ABSENT, BID
     Route: 048
  2. BELATACEPT [Suspect]
     Active Substance: BELATACEPT
     Indication: PROPHYLAXIS AGAINST TRANSPLANT REJECTION
     Dosage: 325 MG, Q4WK
     Route: 042

REACTIONS (1)
  - Arteriovenous fistula site complication [Unknown]

NARRATIVE: CASE EVENT DATE: 20180702
